FAERS Safety Report 5375605-4 (Version None)
Quarter: 2007Q2

REPORT INFORMATION
  Report Type: 
  Country: None (occurrence: None)
  Receive Date: 20070629
  Receipt Date: 20070622
  Transmission Date: 20071010
  Serious: Yes (Other)
  Sender: FDA-Public Use
  Company Number: GB-MERCK-0706USA05015

PATIENT
  Age: 64 Year
  Sex: Female
  Weight: 79 kg

DRUGS (7)
  1. PRINIVIL [Suspect]
     Route: 048
     Dates: start: 20070117, end: 20070425
  2. FOSAMAX [Concomitant]
     Route: 048
     Dates: start: 20040826
  3. ACETAMINOPHEN AND PROPOXYPHENE HYDROCHLORIDE [Concomitant]
     Route: 048
     Dates: start: 20000111, end: 20001101
  4. GAVISCON [Concomitant]
     Route: 048
     Dates: start: 20000713
  5. KETOPROFEN [Concomitant]
     Route: 048
     Dates: start: 20000406
  6. OMEPRAZOLE [Concomitant]
     Route: 048
     Dates: start: 20040121
  7. PREDNISOLONE [Concomitant]
     Route: 048
     Dates: start: 20040105

REACTIONS (1)
  - CONDITION AGGRAVATED [None]
